FAERS Safety Report 8612115-2 (Version None)
Quarter: 2012Q3

REPORT INFORMATION
  Report Type: 
  Country: None (occurrence: None)
  Receive Date: 20120822
  Receipt Date: 20120809
  Transmission Date: 20120928
  Serious: No
  Sender: FDA-Public Use
  Company Number: US-ASTRAZENECA-2012SE56200

PATIENT
  Age: 45 Year
  Sex: Female

DRUGS (4)
  1. XANAX [Concomitant]
  2. CELEXA [Concomitant]
  3. ALLEGRA [Concomitant]
  4. ZOMIG [Suspect]
     Route: 048

REACTIONS (5)
  - THROAT TIGHTNESS [None]
  - HYPOTONIA [None]
  - DRY THROAT [None]
  - THROAT IRRITATION [None]
  - SOMNOLENCE [None]
